FAERS Safety Report 7999802-4 (Version None)
Quarter: 2011Q4

REPORT INFORMATION
  Report Type: 
  Country: None (occurrence: None)
  Receive Date: 20111222
  Receipt Date: 20111213
  Transmission Date: 20120403
  Serious: Yes (Hospitalization)
  Sender: FDA-Public Use
  Company Number: US-BIOGENIDEC-2011BI042140

PATIENT
  Age: 81 Year
  Sex: Female

DRUGS (2)
  1. AVONEX [Suspect]
     Indication: MULTIPLE SCLEROSIS
     Route: 030
     Dates: start: 20040801, end: 20110101
  2. AVONEX [Suspect]
     Route: 030

REACTIONS (7)
  - MULTIPLE SCLEROSIS [None]
  - ASTHENIA [None]
  - RIB FRACTURE [None]
  - CHEST INJURY [None]
  - VOMITING [None]
  - FALL [None]
  - NAUSEA [None]
